FAERS Safety Report 8784282 (Version 1)
Quarter: 2012Q4

REPORT INFORMATION
  Report Type: Spontaneous
  Country: US (occurrence: None)
  Receive Date: 20120905
  Receipt Date: 20120905
  Transmission Date: 20130627
  Serious: Yes (Hospitalization)
  Sender: FDA-Public Use
  Company Number: None

PATIENT
  Age: 38 Year
  Sex: Female
  Weight: 62.7 kg

DRUGS (6)
  1. BEVACIZUMAB [Suspect]
     Indication: METASTATIC MELANOMA
     Dosage: 3 doses btw Jul/Aug 2012
     Route: 042
     Dates: start: 201207, end: 201208
  2. IL-2 [Concomitant]
  3. INTERFERON-ALPHA [Concomitant]
  4. CISPLATIN [Concomitant]
  5. TEMODAR [Concomitant]
  6. VINBLASTINE [Concomitant]

REACTIONS (6)
  - Headache [None]
  - Vision blurred [None]
  - Diplopia [None]
  - Nausea [None]
  - Vomiting [None]
  - Posterior reversible encephalopathy syndrome [None]
